FAERS Safety Report 8910118 (Version 1)
Quarter: 2012Q4

REPORT INFORMATION
  Report Type: 
  Country: IL (occurrence: IL)
  Receive Date: 20121114
  Receipt Date: 20121114
  Transmission Date: 20130627
  Serious: Yes (Death)
  Sender: FDA-Public Use
  Company Number: IL-BAXTER-2012BAX023931

PATIENT

DRUGS (10)
  1. ENDOXAN-1G [Suspect]
     Indication: MULTIPLE MYELOMA
  2. ETOPOSIDE [Suspect]
     Indication: MULTIPLE MYELOMA
  3. THALIDOMIDE [Suspect]
     Indication: MULTIPLE MYELOMA
  4. DEXAMETHASONE [Suspect]
     Indication: MULTIPLE MYELOMA
  5. CISPLATINUM [Suspect]
     Indication: MULTIPLE MYELOMA
  6. ADRIAMYCIN [Suspect]
     Indication: MULTIPLE MYELOMA
  7. BORTEZOMIB [Suspect]
     Indication: MULTIPLE MYELOMA
  8. FLUCONAZOLE [Concomitant]
     Indication: PROPHYLAXIS
  9. CIPROFLOXACIN [Concomitant]
     Indication: PROPHYLAXIS
  10. ACYCLOVIR [Concomitant]
     Indication: PROPHYLAXIS

REACTIONS (1)
  - Sepsis [Fatal]
